FAERS Safety Report 22187911 (Version 3)
Quarter: 2023Q2

REPORT INFORMATION
  Report Type: Report from Study
  Country: US (occurrence: US)
  Receive Date: 20230408
  Receipt Date: 20230605
  Transmission Date: 20230722
  Serious: Yes (Other)
  Sender: FDA-Public Use
  Company Number: US-ABBVIE-4716733

PATIENT
  Sex: Male

DRUGS (2)
  1. HUMIRA [Suspect]
     Active Substance: ADALIMUMAB
     Indication: Crohn^s disease
     Route: 058
     Dates: start: 20160327
  2. HUMIRA [Suspect]
     Active Substance: ADALIMUMAB
     Route: 058

REACTIONS (1)
  - Intervertebral disc degeneration [Not Recovered/Not Resolved]
